FAERS Safety Report 9597095 (Version 1)
Quarter: 2013Q4

REPORT INFORMATION
  Report Type: Spontaneous
  Country: ZA (occurrence: ZA)
  Receive Date: 20131004
  Receipt Date: 20131004
  Transmission Date: 20140711
  Serious: Yes (Hospitalization)
  Sender: FDA-Public Use
  Company Number: ZA-009507513-1309ZAF014362

PATIENT
  Age: 62 Year
  Sex: Male

DRUGS (4)
  1. ESMERON [Suspect]
     Dosage: 70 MG, UNK
  2. PROPOFOL [Suspect]
  3. AUGMENTIN [Suspect]
  4. VENTOLIN (ALBUTEROL) [Suspect]

REACTIONS (2)
  - Dyspnoea [Unknown]
  - Drug effect prolonged [Unknown]
